FAERS Safety Report 4901544-6 (Version None)
Quarter: 2006Q1

REPORT INFORMATION
  Report Type: 
  Country: None (occurrence: None)
  Receive Date: 20060206
  Receipt Date: 20050127
  Transmission Date: 20060701
  Serious: Yes (Hospitalization)
  Sender: FDA-Public Use
  Company Number: US-BRISTOL-MYERS SQUIBB COMPANY-12840310

PATIENT
  Age: 58 Year
  Sex: Male
  Weight: 79 kg

DRUGS (7)
  1. PACLITAXEL [Suspect]
     Indication: METASTATIC RENAL CELL CARCINOMA
     Route: 042
     Dates: start: 20050112, end: 20050112
  2. CARBOPLATIN [Suspect]
     Indication: METASTATIC RENAL CELL CARCINOMA
     Route: 042
     Dates: start: 20050112, end: 20050112
  3. ZOFRAN [Concomitant]
     Dosage: ADMINISTERED FOR 5 DAYS POST CHEMO.
     Route: 048
  4. DECADRON PHOSPHATE [Concomitant]
     Dosage: ADMINISTERED 12 HRS AND 6 HRS PRIOR TO CHEMO.
     Route: 048
  5. ALDACTONE [Concomitant]
     Route: 048
  6. LASIX [Concomitant]
     Route: 048
  7. PREVACID [Concomitant]
     Route: 048

REACTIONS (2)
  - DYSPNOEA [None]
  - RASH GENERALISED [None]
